FAERS Safety Report 5020489-7 (Version None)
Quarter: 2006Q2

REPORT INFORMATION
  Report Type: 
  Country: None (occurrence: None)
  Receive Date: 20060602
  Receipt Date: 20060525
  Transmission Date: 20061013
  Serious: Yes (Other)
  Sender: FDA-Public Use
  Company Number: THQ2006A00325

PATIENT
  Age: 52 Year
  Sex: Female

DRUGS (3)
  1. LANSOPRAZOLE [Suspect]
     Indication: HIATUS HERNIA
     Dosage: (30 MG) PER ORAL
     Route: 048
     Dates: start: 19970101, end: 20051201
  2. MELOXICAM [Suspect]
     Indication: ARTHRALGIA
     Dosage: 15 MG (15 MG, 1  IN 1 D) PER ORAL
     Route: 048
  3. GAMANIL (LOFEPRAMINE HYDROCHLORIDE) [Concomitant]

REACTIONS (1)
  - SYSTEMIC LUPUS ERYTHEMATOSUS [None]
